FAERS Safety Report 6411152-6 (Version None)
Quarter: 2009Q4

REPORT INFORMATION
  Report Type: 
  Country: None (occurrence: None)
  Receive Date: 20091019
  Receipt Date: 20091013
  Transmission Date: 20100525
  Serious: Yes (Other)
  Sender: FDA-Public Use
  Company Number: 2009SP030116

PATIENT
  Age: 65 Year
  Sex: Female

DRUGS (5)
  1. RIBAVIRIN [Suspect]
     Indication: HEPATITIS C
  2. RIBAVIRIN [Suspect]
     Indication: HEPATITIS C
  3. INTERFERON [Suspect]
     Indication: HEPATITIS C
  4. INTERFERON [Suspect]
     Indication: HEPATITIS C
  5. INTERFERON [Suspect]
     Indication: HEPATITIS C

REACTIONS (8)
  - ANTINUCLEAR ANTIBODY INCREASED [None]
  - AUTOIMMUNE HEPATITIS [None]
  - HEPATIC FIBROSIS [None]
  - HEPATITIS VIRAL [None]
  - LIVER TRANSPLANT REJECTION [None]
  - PANCYTOPENIA [None]
  - PHLEBITIS [None]
  - PSYCHIATRIC SYMPTOM [None]
